FAERS Safety Report 4509129-0 (Version None)
Quarter: 2004Q4

REPORT INFORMATION
  Report Type: 
  Country: None (occurrence: None)
  Receive Date: 20041025
  Receipt Date: 20031021
  Transmission Date: 20050328
  Serious: Yes (Other)
  Sender: FDA-Public Use
  Company Number: NSADSS2003018531

PATIENT
  Age: 24 Year
  Sex: Female
  Weight: 73.9363 kg

DRUGS (11)
  1. REMICADE [Suspect]
     Dosage: SEE IMAGE
     Route: 041
     Dates: start: 20010915
  2. REMICADE [Suspect]
     Dosage: SEE IMAGE
     Route: 041
     Dates: start: 20020321
  3. REMICADE [Suspect]
     Dosage: SEE IMAGE
     Route: 041
     Dates: start: 20020911
  4. REMICADE [Suspect]
     Dosage: SEE IMAGE
     Route: 041
     Dates: start: 20021113
  5. REMICADE [Suspect]
     Dosage: SEE IMAGE
     Route: 041
     Dates: start: 20021219
  6. REMICADE [Suspect]
     Dosage: SEE IMAGE
     Route: 041
     Dates: start: 20030301
  7. IMURAN [Concomitant]
  8. PENTASA [Concomitant]
  9. LIBRAX [Concomitant]
  10. NEXIUM [Concomitant]
  11. PREDNISONE [Concomitant]

REACTIONS (2)
  - URTICARIA [None]
  - VASCULITIS [None]
